FAERS Safety Report 21551229 (Version 1)
Quarter: 2022Q4

REPORT INFORMATION
  Report Type: Spontaneous
  Country: EG (occurrence: EG)
  Receive Date: 20221104
  Receipt Date: 20221104
  Transmission Date: 20230113
  Serious: Yes (Death, Life-Threatening, Hospitalization, Other)
  Sender: FDA-Public Use
  Company Number: EG-Hikma Pharmaceuticals-EG-H14001-22-02782

PATIENT
  Age: 9 Year
  Sex: Male

DRUGS (6)
  1. METHOTREXATE [Suspect]
     Active Substance: METHOTREXATE
     Indication: Leukaemia
     Dosage: 2.5 GM/M2
     Route: 041
     Dates: start: 20220214, end: 20220215
  2. METHOTREXATE SODIUM [Suspect]
     Active Substance: METHOTREXATE SODIUM
     Indication: Leukaemia
     Dosage: 0.5ML (12 MG)
     Route: 037
     Dates: start: 20220214
  3. SOLU-CORTEF [Concomitant]
     Active Substance: HYDROCORTISONE SODIUM SUCCINATE
     Indication: Chemotherapy
     Dosage: 0.5 CM
     Route: 037
  4. CYTARABINE [Concomitant]
     Active Substance: CYTARABINE
     Indication: Chemotherapy
     Dosage: 1.8 CM
     Route: 037
  5. SODIUM BICARBONATE [Concomitant]
     Active Substance: SODIUM BICARBONATE
     Indication: Blood alkalinisation therapy
     Dosage: 1 MEQ/1ML
     Route: 041
  6. LEUCOVORIN CALCIUM [Concomitant]
     Active Substance: LEUCOVORIN CALCIUM
     Indication: Prophylaxis
     Dosage: 10-15 MG/M2
     Route: 065

REACTIONS (6)
  - Mucosal inflammation [Unknown]
  - Mouth ulceration [Unknown]
  - Seizure [Unknown]
  - Cardiac arrest [Unknown]
  - Brain injury [Fatal]
  - Product administration error [Unknown]

NARRATIVE: CASE EVENT DATE: 20220220
